FAERS Safety Report 8986159 (Version 2)
Quarter: 2013Q1

REPORT INFORMATION
  Report Type: Spontaneous
  Country: US (occurrence: None)
  Receive Date: 20121214
  Receipt Date: 20130204
  Transmission Date: 20140127
  Serious: Yes (Death, Hospitalization)
  Sender: FDA-Public Use
  Company Number: DSA_61325_2012

PATIENT
  Age: 36 Year
  Sex: Male

DRUGS (1)
  1. XENAZINE [Suspect]
     Indication: HUNTINGTON^S DISEASE
     Dosage: (2.5 TABLETS, DAILY ORAL)
     Route: 048
     Dates: end: 20090327

REACTIONS (5)
  - Huntington^s disease [None]
  - Disease progression [None]
  - Abasia [None]
  - Pneumonia aspiration [None]
  - Abasia [None]
